FAERS Safety Report 4504381-X (Version None)
Quarter: 2004Q4

REPORT INFORMATION
  Report Type: 
  Country: None (occurrence: None)
  Receive Date: 20041116
  Receipt Date: 20041109
  Transmission Date: 20050328
  Serious: Yes (Hospitalization)
  Sender: FDA-Public Use
  Company Number: US-JNJFOC-20040904513

PATIENT
  Age: 70 Year
  Sex: Male

DRUGS (1)
  1. MOTRIN IB [Suspect]
     Indication: PAIN
     Dosage: 200 MG, 2 IN 1 DAY, ORAL
     Route: 048
     Dates: start: 20040827, end: 20040901

REACTIONS (15)
  - ASTHENIA [None]
  - BACK PAIN [None]
  - BLOOD GLUCOSE INCREASED [None]
  - BLOOD PRESSURE DECREASED [None]
  - BLOOD URINE PRESENT [None]
  - CHILLS [None]
  - COLD SWEAT [None]
  - DEHYDRATION [None]
  - FEELING ABNORMAL [None]
  - HYPERHIDROSIS [None]
  - PYREXIA [None]
  - RENAL DISORDER [None]
  - RENAL FAILURE CHRONIC [None]
  - TREMOR [None]
  - WEIGHT DECREASED [None]
